FAERS Safety Report 16404160 (Version 1)
Quarter: 2019Q2

REPORT INFORMATION
  Report Type: Report from Study
  Country: US (occurrence: US)
  Receive Date: 20190607
  Receipt Date: 20190607
  Transmission Date: 20190711
  Serious: Yes (Hospitalization)
  Sender: FDA-Public Use
  Company Number: US-SA-2019SA153067

PATIENT
  Sex: Male
  Weight: 53.07 kg

DRUGS (1)
  1. FEXOFENADINE HYDROCHLORIDE. [Suspect]
     Active Substance: FEXOFENADINE HYDROCHLORIDE
     Indication: MULTIPLE ALLERGIES
     Dosage: 1 DF, QD
     Route: 048

REACTIONS (1)
  - Muscle strain [Recovered/Resolved]

NARRATIVE: CASE EVENT DATE: 20190519
